FAERS Safety Report 19410450 (Version 1)
Quarter: 2021Q2

REPORT INFORMATION
  Report Type: Spontaneous
  Country: US (occurrence: US)
  Receive Date: 20210612
  Receipt Date: 20210612
  Transmission Date: 20210717
  Serious: Yes (Disabling)
  Sender: FDA-Public Use
  Company Number: None

PATIENT
  Age: 34 Year
  Sex: Female
  Weight: 87.75 kg

DRUGS (9)
  1. LITHIUM. [Concomitant]
     Active Substance: LITHIUM
  2. HYALURONIC ACID [Concomitant]
     Active Substance: HYALURONIC ACID
  3. HUMIRA [Suspect]
     Active Substance: ADALIMUMAB
     Indication: HIDRADENITIS
     Dosage: ?          OTHER FREQUENCY:WEEKLY;?
     Route: 058
     Dates: end: 20210514
  4. BIRTH CONTROL HORMONAL PILL [Concomitant]
  5. ULTRAVIATE STEROID CREAM [Concomitant]
  6. COLLAGEN [Concomitant]
     Active Substance: COLLAGEN
  7. SEROQUEL [Concomitant]
     Active Substance: QUETIAPINE FUMARATE
  8. SPIRONOLACTONE. [Concomitant]
     Active Substance: SPIRONOLACTONE
  9. CHOLESTOFF [Concomitant]

REACTIONS (7)
  - Psoriasis [None]
  - Drug ineffective [None]
  - Palmoplantar pustulosis [None]
  - Pain [None]
  - Discomfort [None]
  - Quality of life decreased [None]
  - Pustular psoriasis [None]

NARRATIVE: CASE EVENT DATE: 20200601
